FAERS Safety Report 8430466 (Version 2)
Quarter: 2012Q4

REPORT INFORMATION
  Report Type: 
  Country: US (occurrence: US)
  Receive Date: 20120228
  Receipt Date: 20121026
  Transmission Date: 20130627
  Serious: Yes (Hospitalization)
  Sender: FDA-Public Use
  Company Number: US-BAYER-2012-017006

PATIENT
  Age: 29 Year
  Sex: Female
  Weight: 142.86 kg

DRUGS (8)
  1. BEYAZ [Suspect]
     Indication: CONTRACEPTION
     Dosage: UNK
     Route: 048
     Dates: start: 201101, end: 201105
  2. LEVAQUIN [Concomitant]
     Indication: SINUSITIS
     Dosage: 500 mg, UNK
     Route: 048
  3. LEVAQUIN [Concomitant]
     Indication: BRONCHITIS
  4. NOTUSS [Concomitant]
     Indication: SINUSITIS
     Route: 048
  5. NOTUSS [Concomitant]
     Indication: BRONCHITIS
  6. LINCOCIN [Concomitant]
     Indication: SINUSITIS
     Route: 048
  7. LINCOCIN [Concomitant]
     Indication: BRONCHITIS
  8. CELEBREX [Concomitant]
     Route: 048

REACTIONS (3)
  - Deep vein thrombosis [None]
  - Pulmonary embolism [None]
  - Mental disorder [None]
